FAERS Safety Report 25009348 (Version 1)
Quarter: 2025Q1

REPORT INFORMATION
  Report Type: Spontaneous
  Country: ES (occurrence: ES)
  Receive Date: 20250225
  Receipt Date: 20250225
  Transmission Date: 20250408
  Serious: Yes (Hospitalization)
  Sender: CURIUM PHARMACEUTICALS
  Company Number: None

PATIENT
  Age: 26 Year
  Sex: Female

DRUGS (2)
  1. SODIUM IODIDE I 123 [Suspect]
     Active Substance: SODIUM IODIDE I-123
     Indication: Poorly differentiated thyroid carcinoma
     Route: 042
     Dates: start: 20250115, end: 20250115
  2. thyrotropin alpha (TSHrh) [Concomitant]
     Indication: Iodine uptake
     Route: 030
     Dates: start: 20250113, end: 20250114

REACTIONS (2)
  - Glossitis [Recovered/Resolved]
  - Salivary hypersecretion [Recovered/Resolved]

NARRATIVE: CASE EVENT DATE: 20250115
